FAERS Safety Report 15943495 (Version 1)
Quarter: 2019Q1

REPORT INFORMATION
  Report Type: Spontaneous
  Country: US (occurrence: US)
  Receive Date: 20190210
  Receipt Date: 20190210
  Transmission Date: 20190417
  Serious: Yes (Death, Hospitalization, Other)
  Sender: FDA-Public Use
  Company Number: PHEH2019US005572

PATIENT
  Age: 11 Year
  Sex: Male
  Weight: 52 kg

DRUGS (5)
  1. METHYLPREDISOLONE [Concomitant]
     Active Substance: METHYLPREDNISOLONE
     Indication: CYTOKINE RELEASE SYNDROME
     Dosage: 2 MG/KG, QD
     Route: 042
     Dates: start: 20181217, end: 20181225
  2. KYMRIAH [Suspect]
     Active Substance: TISAGENLECLEUCEL
     Indication: ACUTE LYMPHOCYTIC LEUKAEMIA RECURRENT
     Dosage: 1.7 X 10E6 CAR+ VIABLE T-CELLS/KG
     Route: 042
     Dates: start: 20181206
  3. TOCILIZUMAB. [Concomitant]
     Active Substance: TOCILIZUMAB
     Dosage: 420 MG, QD
     Route: 042
     Dates: start: 20181224, end: 20181224
  4. TOCILIZUMAB. [Concomitant]
     Active Substance: TOCILIZUMAB
     Indication: CYTOKINE RELEASE SYNDROME
     Dosage: 460 MG, QD
     Route: 042
     Dates: start: 20181207, end: 20181207
  5. TOCILIZUMAB. [Concomitant]
     Active Substance: TOCILIZUMAB
     Dosage: 460 MG, BID
     Route: 042
     Dates: start: 20181216, end: 20181216

REACTIONS (12)
  - Pulmonary haemorrhage [Unknown]
  - Metabolic acidosis [Unknown]
  - Pyrexia [Recovered/Resolved]
  - Coagulopathy [Unknown]
  - Multiple organ dysfunction syndrome [Unknown]
  - Respiratory distress [Not Recovered/Not Resolved]
  - Neutropenia [Fatal]
  - Pneumonia [Fatal]
  - Stenotrophomonas sepsis [Fatal]
  - Cytokine release syndrome [Recovered/Resolved with Sequelae]
  - Facial paralysis [Unknown]
  - Hypotension [Unknown]

NARRATIVE: CASE EVENT DATE: 20181207
